FAERS Safety Report 14264364 (Version 1)
Quarter: 2017Q4

REPORT INFORMATION
  Report Type: Spontaneous
  Country: US (occurrence: US)
  Receive Date: 20171208
  Receipt Date: 20171208
  Transmission Date: 20180321
  Serious: No
  Sender: FDA-Public Use
  Company Number: US-JAZZ-2017-US-011632

PATIENT
  Sex: Female

DRUGS (23)
  1. LISINOPRIL + HIDROCLOROTIAZIDA [Concomitant]
     Active Substance: HYDROCHLOROTHIAZIDE\LISINOPRIL
  2. RITALIN [Concomitant]
     Active Substance: METHYLPHENIDATE HYDROCHLORIDE
  3. VENLAFAXINE HCL [Concomitant]
     Active Substance: VENLAFAXINE HYDROCHLORIDE
  4. VITAMIN D                          /00107901/ [Concomitant]
     Active Substance: ERGOCALCIFEROL
  5. MYRBETRIQ [Concomitant]
     Active Substance: MIRABEGRON
  6. XYREM [Suspect]
     Active Substance: SODIUM OXYBATE
     Indication: CATAPLEXY
     Dosage: DOSE ADJUSTMENTS
     Route: 048
     Dates: start: 200603, end: 201703
  7. ATENOLOL. [Concomitant]
     Active Substance: ATENOLOL
  8. VITAMIN B12 [Concomitant]
     Active Substance: CYANOCOBALAMIN
  9. XYREM [Suspect]
     Active Substance: SODIUM OXYBATE
     Indication: NARCOLEPSY
     Dosage: 2.25 G, BID
     Route: 048
     Dates: start: 200601, end: 200603
  10. XARELTO [Concomitant]
     Active Substance: RIVAROXABAN
  11. MICARDIS [Concomitant]
     Active Substance: TELMISARTAN
  12. PRAVASTATIN SODIUM. [Concomitant]
     Active Substance: PRAVASTATIN SODIUM
  13. EFFEXOR [Concomitant]
     Active Substance: VENLAFAXINE HYDROCHLORIDE
  14. LISINOPRIL. [Concomitant]
     Active Substance: LISINOPRIL
  15. XYREM [Suspect]
     Active Substance: SODIUM OXYBATE
     Dosage: 2.25 G, BID (SECOND AND THIRD DOSE)
     Route: 048
     Dates: start: 201703
  16. XYREM [Suspect]
     Active Substance: SODIUM OXYBATE
     Dosage: 3G, QD (FIRST DOSE)
     Route: 048
     Dates: start: 201703
  17. CALTRATE                           /00944201/ [Concomitant]
     Active Substance: CALCIUM CARBONATE\CHOLECALCIFEROL
  18. WARFARIN SODIUM. [Concomitant]
     Active Substance: WARFARIN SODIUM
  19. ELIQUIS [Concomitant]
     Active Substance: APIXABAN
  20. ASPIRIN                            /00002701/ [Concomitant]
     Active Substance: ASPIRIN
  21. COUMADIN [Concomitant]
     Active Substance: WARFARIN SODIUM
  22. PRAVACHOL [Concomitant]
     Active Substance: PRAVASTATIN SODIUM
  23. MULTAQ [Concomitant]
     Active Substance: DRONEDARONE

REACTIONS (1)
  - Malaise [Recovering/Resolving]
